FAERS Safety Report 9910221 (Version 1)
Quarter: 2014Q1

REPORT INFORMATION
  Report Type: Spontaneous
  Country: GB (occurrence: GB)
  Receive Date: 20140219
  Receipt Date: 20140219
  Transmission Date: 20141002
  Serious: Yes (Other)
  Sender: FDA-Public Use
  Company Number: GB-TEVA-462681ISR

PATIENT
  Age: 46 Year
  Sex: Female
  Weight: 71 kg

DRUGS (1)
  1. CETIRIZINE [Suspect]
     Indication: SEASONAL ALLERGY
     Route: 048

REACTIONS (3)
  - Irritability [Recovered/Resolved]
  - Anger [Recovered/Resolved]
  - Impaired reasoning [Recovered/Resolved]
